FAERS Safety Report 5002363-5 (Version None)
Quarter: 2006Q2

REPORT INFORMATION
  Report Type: 
  Country: None (occurrence: None)
  Receive Date: 20060512
  Receipt Date: 20060428
  Transmission Date: 20061013
  Serious: Yes (Other)
  Sender: FDA-Public Use
  Company Number: US017427

PATIENT
  Age: 61 Year
  Sex: Male

DRUGS (4)
  1. TRISENOX [Suspect]
     Indication: ACUTE PROMYELOCYTIC LEUKAEMIA
     Dosage: 11.385 MG QD INTRAVENOUS DRIP
     Route: 041
     Dates: start: 20050117, end: 20050311
  2. TRISENOX [Suspect]
     Indication: ACUTE PROMYELOCYTIC LEUKAEMIA
     Dosage: 10.005 MG QD INTRAVENOUS DRIP
     Route: 041
     Dates: start: 20050405, end: 20050429
  3. BLOOD SUBSTITUTE [Concomitant]
  4. L-ASPARTATE POTASSIUM [Concomitant]

REACTIONS (1)
  - HYPOAESTHESIA [None]
